FAERS Safety Report 8373264-X (Version None)
Quarter: 2012Q2

REPORT INFORMATION
  Report Type: 
  Country: None (occurrence: None)
  Receive Date: 20120521
  Receipt Date: 20120511
  Transmission Date: 20120825
  Serious: Yes (Other)
  Sender: FDA-Public Use
  Company Number: FR-MILLENNIUM PHARMACEUTICALS, INC.-2012-03361

PATIENT

DRUGS (3)
  1. VELCADE [Suspect]
     Indication: MYELODYSPLASTIC SYNDROME
     Dosage: 1.5 MG/M2, CYCLIC
  2. CYTARABINE [Suspect]
     Indication: MYELODYSPLASTIC SYNDROME
     Dosage: 10 MG/M2, CYCLIC
  3. CYTARABINE [Suspect]
     Dosage: 20 MG/M2, CYCLIC

REACTIONS (1)
  - VAGINAL HAEMORRHAGE [None]
